FAERS Safety Report 9855428 (Version 1)
Quarter: 2014Q1

REPORT INFORMATION
  Report Type: Spontaneous
  Country: US (occurrence: None)
  Receive Date: 20140129
  Receipt Date: 20140129
  Transmission Date: 20141002
  Serious: No
  Sender: FDA-Public Use
  Company Number: None

PATIENT
  Age: 47 Year
  Sex: Female

DRUGS (1)
  1. EXJADE [Suspect]
     Route: 048
     Dates: start: 20140102, end: 20140128

REACTIONS (2)
  - Faeces discoloured [None]
  - Hypoacusis [None]
